FAERS Safety Report 20489465 (Version 1)
Quarter: 2022Q1

REPORT INFORMATION
  Report Type: Spontaneous
  Country: US (occurrence: None)
  Receive Date: 20220217
  Receipt Date: 20220217
  Transmission Date: 20220423
  Serious: Yes (Other)
  Sender: FDA-Public Use
  Company Number: None

PATIENT
  Age: 64 Year
  Sex: Female
  Weight: 79.38 kg

DRUGS (1)
  1. NUVIGIL [Suspect]
     Active Substance: ARMODAFINIL
     Indication: Relapsing-remitting multiple sclerosis
     Dosage: OTHER FREQUENCY : QAM;?
     Route: 048
     Dates: start: 20131023, end: 20220209

REACTIONS (1)
  - Fatigue [None]

NARRATIVE: CASE EVENT DATE: 20220209
